FAERS Safety Report 21446982 (Version 1)
Quarter: 2022Q4

REPORT INFORMATION
  Report Type: Spontaneous
  Country: US (occurrence: US)
  Receive Date: 20221012
  Receipt Date: 20221012
  Transmission Date: 20230113
  Serious: Yes (Hospitalization)
  Sender: FDA-Public Use
  Company Number: US-BRISTOL-MYERS SQUIBB COMPANY-2022-117396

PATIENT
  Age: 69 Year
  Sex: Male

DRUGS (1)
  1. REVLIMID [Suspect]
     Active Substance: LENALIDOMIDE
     Indication: Lung carcinoma cell type unspecified stage 0
     Route: 048
     Dates: start: 202207

REACTIONS (2)
  - General physical health deterioration [Unknown]
  - Intentional product use issue [Not Recovered/Not Resolved]
